FAERS Safety Report 12378524 (Version 2)
Quarter: 2016Q3

REPORT INFORMATION
  Report Type: Spontaneous
  Country: US (occurrence: US)
  Receive Date: 20160517
  Receipt Date: 20160715
  Transmission Date: 20161109
  Serious: Yes (Other)
  Sender: FDA-Public Use
  Company Number: US-BAYER-2016-092657

PATIENT
  Age: 72 Year
  Sex: Male
  Weight: 106.58 kg

DRUGS (3)
  1. CLARITIN REDITABS [Suspect]
     Active Substance: LORATADINE
     Indication: SEASONAL ALLERGY
     Dosage: 1 DF, QD
     Route: 048
     Dates: start: 201602, end: 201604
  2. HYDROCHLOROTHIAZIDE. [Concomitant]
     Active Substance: HYDROCHLOROTHIAZIDE
  3. CLARITIN [Suspect]
     Active Substance: LORATADINE
     Indication: SEASONAL ALLERGY
     Dosage: UNK
     Route: 048
     Dates: start: 201602, end: 201602

REACTIONS (9)
  - Hypertension [Recovered/Resolved]
  - Pulse absent [None]
  - Tremor [None]
  - Drug effect delayed [None]
  - Product use issue [None]
  - Tremor [Recovered/Resolved]
  - Heart rate increased [None]
  - Therapeutic response unexpected [None]
  - Heart rate increased [Recovered/Resolved]

NARRATIVE: CASE EVENT DATE: 201602
